FAERS Safety Report 10057871 (Version 2)
Quarter: 2014Q2

REPORT INFORMATION
  Report Type: Spontaneous
  Country: US (occurrence: US)
  Receive Date: 20140404
  Receipt Date: 20140409
  Transmission Date: 20141212
  Serious: Yes (Other)
  Sender: FDA-Public Use
  Company Number: US-RB-064518-14

PATIENT
  Age: 56 Year
  Sex: Female

DRUGS (2)
  1. MUCINEX DM [Suspect]
     Indication: PRODUCT USED FOR UNKNOWN INDICATION
     Dosage: TOOK 3 DOSES EVERY 12 HOURS
     Route: 048
     Dates: start: 20140322
  2. ARMOUR [Concomitant]
     Indication: THYROID DISORDER
     Dosage: ONCE A DAY

REACTIONS (5)
  - Hallucination [Recovered/Resolved]
  - Unevaluable event [Recovered/Resolved]
  - Irritability [Recovered/Resolved]
  - Condition aggravated [Recovered/Resolved]
  - Feeling abnormal [Not Recovered/Not Resolved]
